FAERS Safety Report 20958477 (Version 3)
Quarter: 2022Q3

REPORT INFORMATION
  Report Type: Other
  Country: JP (occurrence: JP)
  Receive Date: 20220614
  Receipt Date: 20220718
  Transmission Date: 20221027
  Serious: Yes (Other)
  Sender: FDA-Public Use
  Company Number: JP-CHUGAI-2022021182

PATIENT
  Age: 70 Year
  Sex: Female
  Weight: 38 kg

DRUGS (2)
  1. ENTRECTINIB [Suspect]
     Active Substance: ENTRECTINIB
     Indication: Lung adenocarcinoma
     Dosage: 400 MILLIGRAM, QD
     Route: 048
     Dates: start: 20210519, end: 20210529
  2. ENTRECTINIB [Suspect]
     Active Substance: ENTRECTINIB
     Dosage: 200 MILLIGRAM, QD
     Route: 048
     Dates: start: 20210610

REACTIONS (2)
  - Erythema multiforme [Recovered/Resolved]
  - Rash [Recovering/Resolving]

NARRATIVE: CASE EVENT DATE: 20210529
